FAERS Safety Report 20954006 (Version 1)
Quarter: 2022Q2

REPORT INFORMATION
  Report Type: Report from Study
  Country: US (occurrence: US)
  Receive Date: 20220614
  Receipt Date: 20220614
  Transmission Date: 20220721
  Serious: Yes (Hospitalization)
  Sender: FDA-Public Use
  Company Number: US-ORPHANEU-2022002570

PATIENT

DRUGS (4)
  1. CARBAGLU [Suspect]
     Active Substance: CARGLUMIC ACID
     Indication: Hyperglycinaemia
     Dosage: 200 MILLIGRAM, TID
     Dates: start: 2022
  2. AMOXICILLIN [Concomitant]
     Active Substance: AMOXICILLIN
     Indication: Hypersensitivity
     Dosage: 125 MILLIGRAM/5 MILLILETER
  3. RINGERS SOLUTION [Concomitant]
     Active Substance: CALCIUM CHLORIDE\POTASSIUM CHLORIDE\SODIUM CHLORIDE
     Indication: Hypersensitivity
     Dosage: INTRAVENOUS SOLUTION
     Route: 042
  4. ATRACURIUM BESYLATE [Concomitant]
     Active Substance: ATRACURIUM BESYLATE
     Indication: Hypersensitivity
     Dosage: 10 MILLIGRAM PER MILLILITRE, VIAL

REACTIONS (2)
  - Dehydration [Unknown]
  - Ammonia increased [Unknown]

NARRATIVE: CASE EVENT DATE: 20220101
